FAERS Safety Report 8224255-0 (Version None)
Quarter: 2012Q1

REPORT INFORMATION
  Report Type: 
  Country: None (occurrence: None)
  Receive Date: 20120307
  Receipt Date: 20110518
  Transmission Date: 20120608
  Serious: No
  Sender: FDA-Public Use
  Company Number: PHHY2011US49451

PATIENT
  Age: 70 Year

DRUGS (1)
  1. AFINITOR [Suspect]
     Dosage: 10 MG, ORAL
     Route: 048

REACTIONS (1)
  - NO ADVERSE EVENT [None]
